FAERS Safety Report 15786130 (Version 1)
Quarter: 2019Q1

REPORT INFORMATION
  Report Type: Spontaneous
  Country: GB (occurrence: GB)
  Receive Date: 20190103
  Receipt Date: 20190103
  Transmission Date: 20190417
  Serious: Yes (Other)
  Sender: FDA-Public Use
  Company Number: GB-PFIZER INC-2018535068

PATIENT
  Sex: Female

DRUGS (3)
  1. SULFASALAZINE. [Suspect]
     Active Substance: SULFASALAZINE
     Indication: RHEUMATOID ARTHRITIS
     Dosage: 1500 MG, UNK
     Route: 048
     Dates: end: 20181114
  2. METHOTREXATE. [Concomitant]
     Active Substance: METHOTREXATE
  3. NAPROXEN. [Concomitant]
     Active Substance: NAPROXEN

REACTIONS (4)
  - Thinking abnormal [Unknown]
  - Condition aggravated [Unknown]
  - Sleep terror [Recovered/Resolved]
  - Disease recurrence [Recovered/Resolved]
